FAERS Safety Report 11156082 (Version 4)
Quarter: 2015Q3

REPORT INFORMATION
  Report Type: Spontaneous
  Country: JP (occurrence: JP)
  Receive Date: 20150602
  Receipt Date: 20150828
  Transmission Date: 20151125
  Serious: Yes (Hospitalization)
  Sender: FDA-Public Use
  Company Number: JP-DSJP-DSJ-2015-116858AA

PATIENT
  Age: 88 Year
  Sex: Female
  Weight: 58 kg

DRUGS (7)
  1. ARTIST TABLETS 2.5MG [Concomitant]
     Dosage: 2.5 MG, QD
     Route: 050
  2. DIGOSIN [Concomitant]
     Active Substance: DIGOXIN
     Dosage: 0.125 MG, QD
     Route: 050
     Dates: start: 20150428, end: 20150529
  3. FUROSEMIDE. [Concomitant]
     Active Substance: FUROSEMIDE
     Dosage: 20 MG, QD
     Route: 050
     Dates: start: 20150416
  4. LIXIANA TABLETS [Suspect]
     Active Substance: EDOXABAN TOSILATE MONOHYDRATE
     Indication: ATRIAL FIBRILLATION
     Dosage: 30 MG/DAY
     Route: 050
     Dates: start: 20150423, end: 20150430
  5. LANSOPRAZOLE. [Concomitant]
     Active Substance: LANSOPRAZOLE
     Dosage: 15 MG, QD
     Route: 050
  6. SULBACILLIN [Concomitant]
     Active Substance: AMPICILLIN SODIUM\SULBACTAM SODIUM
     Dosage: 1.5 G, BID
     Route: 041
     Dates: start: 20150424, end: 20150427
  7. TEGRETOL [Concomitant]
     Active Substance: CARBAMAZEPINE
     Dosage: 200 MG, QD
     Route: 050
     Dates: start: 20150323

REACTIONS (1)
  - Pneumonia [Recovering/Resolving]

NARRATIVE: CASE EVENT DATE: 20150429
